FAERS Safety Report 16735615 (Version 1)
Quarter: 2019Q4

REPORT INFORMATION
  Report Type: Spontaneous
  Country: US (occurrence: US)
  Receive Date: 20190823
  Receipt Date: 20190823
  Transmission Date: 20200122
  Serious: Yes (Other)
  Sender: FDA-Public Use
  Company Number: None

PATIENT
  Age: 69 Year
  Sex: Male
  Weight: 116.1 kg

DRUGS (2)
  1. FARYDAK [Suspect]
     Active Substance: PANOBINOSTAT
     Indication: PLASMA CELL MYELOMA
     Dosage: ?          OTHER FREQUENCY:3X/WEEK;?
     Route: 048
     Dates: start: 20190328
  2. POMALYST [Concomitant]
     Active Substance: POMALIDOMIDE
     Dates: start: 20161006

REACTIONS (1)
  - Blood calcium decreased [None]

NARRATIVE: CASE EVENT DATE: 20190822
